FAERS Safety Report 6266778-X (Version None)
Quarter: 2009Q3

REPORT INFORMATION
  Report Type: 
  Country: None (occurrence: None)
  Receive Date: 20090714
  Receipt Date: 20090708
  Transmission Date: 20100115
  Serious: Yes (Death)
  Sender: FDA-Public Use
  Company Number: CH-CELGENEUS-151-50794-09062241

PATIENT
  Sex: Female

DRUGS (4)
  1. VIDAZA [Suspect]
     Route: 050
     Dates: start: 20090608, end: 20090612
  2. HYDROXYUREA [Concomitant]
     Indication: DRUG USE FOR UNKNOWN INDICATION
     Route: 065
     Dates: end: 20090607
  3. HYDROXYUREA [Concomitant]
     Route: 065
  4. TAZOBAC [Concomitant]
     Indication: DRUG USE FOR UNKNOWN INDICATION
     Route: 065
     Dates: start: 20090615, end: 20090621

REACTIONS (1)
  - UROSEPSIS [None]
